FAERS Safety Report 9431485 (Version 1)
Quarter: 2013Q3

REPORT INFORMATION
  Report Type: Spontaneous
  Country: CH (occurrence: CH)
  Receive Date: 20130730
  Receipt Date: 20130730
  Transmission Date: 20140515
  Serious: Yes (Hospitalization)
  Sender: FDA-Public Use
  Company Number: CH-ROCHE-1253767

PATIENT
  Age: 36 Year
  Sex: Female

DRUGS (4)
  1. MABTHERA [Suspect]
     Indication: SYSTEMIC LUPUS ERYTHEMATOSUS
     Route: 041
     Dates: start: 20130513, end: 20130603
  2. PREDNISONE [Concomitant]
     Dosage: DOSE VARIES FROM 5 TO 10MG/DAY
     Route: 065
  3. DAFALGAN [Concomitant]
     Route: 065
  4. IRFEN [Concomitant]

REACTIONS (6)
  - Systemic inflammatory response syndrome [Recovering/Resolving]
  - Pyrexia [Recovered/Resolved]
  - Arthralgia [Recovering/Resolving]
  - Rash [Recovering/Resolving]
  - Arthritis [Recovering/Resolving]
  - Vasculitis [Unknown]
